APPROVED DRUG PRODUCT: AMPICILLIN AND SULBACTAM
Active Ingredient: AMPICILLIN SODIUM; SULBACTAM SODIUM
Strength: EQ 10GM BASE/VIAL;EQ 5GM BASE/VIAL
Dosage Form/Route: INJECTABLE;INJECTION
Application: A090646 | Product #001
Applicant: HOSPIRA INC
Approved: Dec 21, 2011 | RLD: No | RS: No | Type: DISCN